FAERS Safety Report 24659076 (Version 1)
Quarter: 2024Q4

REPORT INFORMATION
  Report Type: Spontaneous
  Country: GB (occurrence: GB)
  Receive Date: 20241125
  Receipt Date: 20241125
  Transmission Date: 20250115
  Serious: Yes (Other)
  Sender: MYLAN
  Company Number: GB-MYLANLABS-2024M1104841

PATIENT
  Age: 65 Year
  Sex: Male

DRUGS (2)
  1. VANCOMYCIN [Suspect]
     Active Substance: VANCOMYCIN
     Indication: Enterococcal bacteraemia
     Dosage: UNK
     Route: 042
  2. DALBAVANCIN [Concomitant]
     Active Substance: DALBAVANCIN
     Indication: Enterococcal bacteraemia
     Dosage: UNK UNK, EVERY 6 WEEKS
     Route: 065

REACTIONS (1)
  - Drug resistance [Unknown]
